FAERS Safety Report 21689575 (Version 2)
Quarter: 2022Q4

REPORT INFORMATION
  Report Type: Spontaneous
  Country: CN (occurrence: CN)
  Receive Date: 20221206
  Receipt Date: 20221216
  Transmission Date: 20230113
  Serious: Yes (Other)
  Sender: FDA-Public Use
  Company Number: CN-BAYER-2022A166468

PATIENT
  Age: 21 Year
  Sex: Female

DRUGS (2)
  1. AVELOX [Interacting]
     Active Substance: MOXIFLOXACIN HYDROCHLORIDE
     Indication: Pelvic inflammatory disease
     Dosage: 1 DF, QD
     Route: 048
     Dates: start: 202204, end: 202204
  2. YAZ [Interacting]
     Active Substance: DROSPIRENONE\ETHINYL ESTRADIOL
     Indication: Endometriosis
     Dosage: 1 DF, QD
     Route: 048
     Dates: start: 202206, end: 202206

REACTIONS (22)
  - Arthralgia [Recovering/Resolving]
  - Tendonitis [Recovering/Resolving]
  - Gait inability [Recovering/Resolving]
  - Tendon pain [Recovered/Resolved]
  - Hypoaesthesia [Recovered/Resolved]
  - Paraesthesia [Recovered/Resolved]
  - Myalgia [Recovered/Resolved]
  - Insomnia [Recovered/Resolved]
  - Endometriosis [Unknown]
  - Pain [Recovering/Resolving]
  - Tendon injury [Recovering/Resolving]
  - Tendon pain [Recovering/Resolving]
  - Tendon disorder [Recovering/Resolving]
  - Pain in extremity [Recovering/Resolving]
  - Peripheral swelling [Recovering/Resolving]
  - Muscle twitching [Recovering/Resolving]
  - Myalgia [Recovering/Resolving]
  - Back pain [Recovering/Resolving]
  - Hypoaesthesia [Recovering/Resolving]
  - Joint noise [Recovering/Resolving]
  - Off label use [None]
  - Drug interaction [None]

NARRATIVE: CASE EVENT DATE: 20220101
